FAERS Safety Report 21748014 (Version 1)
Quarter: 2022Q4

REPORT INFORMATION
  Report Type: Spontaneous
  Country: US (occurrence: US)
  Receive Date: 20221219
  Receipt Date: 20221219
  Transmission Date: 20230113
  Serious: No
  Sender: FDA-Public Use
  Company Number: US-PFIZER INC-202201378154

PATIENT
  Age: 69 Year
  Sex: Male
  Weight: 79.38 kg

DRUGS (1)
  1. PAXLOVID [Suspect]
     Active Substance: NIRMATRELVIR\RITONAVIR
     Indication: COVID-19 treatment
     Dosage: [PF-07321332 150 MG]/[RITONAVIR 100 MG], 2X/DAY
     Dates: start: 20221210

REACTIONS (6)
  - Dysgeusia [Not Recovered/Not Resolved]
  - Pyrexia [Unknown]
  - Hyperhidrosis [Unknown]
  - Product design confusion [Unknown]
  - Incorrect dose administered [Unknown]
  - Therapeutic product effect incomplete [Unknown]

NARRATIVE: CASE EVENT DATE: 20221210
